FAERS Safety Report 8343322-4 (Version None)
Quarter: 2012Q2

REPORT INFORMATION
  Report Type: 
  Country: None (occurrence: None)
  Receive Date: 20120508
  Receipt Date: 20120503
  Transmission Date: 20120825
  Serious: Yes (Other)
  Sender: FDA-Public Use
  Company Number: GXKR2012DE001626

PATIENT
  Age: 55 Year
  Sex: Male

DRUGS (1)
  1. BISOPROLOL PLUS 1A PHARMA [Suspect]
     Route: 048

REACTIONS (1)
  - GYNAECOMASTIA [None]
